FAERS Safety Report 6027135-4 (Version None)
Quarter: 2009Q1

REPORT INFORMATION
  Report Type: 
  Country: None (occurrence: None)
  Receive Date: 20090105
  Receipt Date: 20081215
  Transmission Date: 20090719
  Serious: Yes (Other)
  Sender: FDA-Public Use
  Company Number: GB-AVENTIS-200821897GDDC

PATIENT

DRUGS (5)
  1. GLIBENCLAMIDE [Suspect]
  2. METFORMIN HCL [Suspect]
  3. GLIMEPIRIDE [Suspect]
  4. GLIPIZIDE [Suspect]
  5. GLICLAZIDE [Suspect]

REACTIONS (1)
  - PREDISPOSITION TO DISEASE [None]
